FAERS Safety Report 5514722-2 (Version None)
Quarter: 2007Q4

REPORT INFORMATION
  Report Type: 
  Country: None (occurrence: None)
  Receive Date: 20071113
  Receipt Date: 20071101
  Transmission Date: 20080405
  Serious: Yes (Disabling)
  Sender: FDA-Public Use
  Company Number: GB-PFIZER INC-2007092560

PATIENT
  Sex: Female
  Weight: 91 kg

DRUGS (10)
  1. GABAPENTIN [Suspect]
     Indication: NEURALGIA
     Route: 048
     Dates: start: 20051001, end: 20051201
  2. ATENOLOL [Concomitant]
  3. CO-CODAMOL [Concomitant]
  4. DIAZEPAM [Concomitant]
  5. ENALAPRIL MALEATE [Concomitant]
  6. OXERUTINS [Concomitant]
  7. PROCTOSEDYL ^HOECHST^ [Concomitant]
  8. TEMAZEPAM [Concomitant]
  9. LEVOTHYROXINE SODIUM [Concomitant]
  10. WARFARIN SODIUM [Concomitant]

REACTIONS (4)
  - GINGIVAL PAIN [None]
  - LIP PAIN [None]
  - MOUTH ULCERATION [None]
  - RASH GENERALISED [None]
